FAERS Safety Report 19284659 (Version 1)
Quarter: 2021Q2

REPORT INFORMATION
  Report Type: Spontaneous
  Country: US (occurrence: US)
  Receive Date: 20210521
  Receipt Date: 20210521
  Transmission Date: 20210717
  Serious: Yes (Hospitalization, Other)
  Sender: FDA-Public Use
  Company Number: None

PATIENT
  Sex: Female

DRUGS (13)
  1. TOPIRAMATE. [Concomitant]
     Active Substance: TOPIRAMATE
     Dates: start: 20201209
  2. LIDO/PRILOCN CRE [Concomitant]
     Dates: start: 20210507
  3. GABAPENTIN. [Concomitant]
     Active Substance: GABAPENTIN
     Dates: start: 20201214
  4. CEPHALEXIN. [Concomitant]
     Active Substance: CEPHALEXIN
     Dates: start: 20210504
  5. PROPRANOLOL [Concomitant]
     Active Substance: PROPRANOLOL HYDROCHLORIDE
     Dates: start: 20201226
  6. NURTEX [Concomitant]
     Dates: start: 20210511
  7. AZITHROMYCIN ANHYDROUS. [Concomitant]
     Active Substance: AZITHROMYCIN ANHYDROUS
     Dates: start: 20210512
  8. TRIAMCINOLON [Concomitant]
     Dates: start: 20210518
  9. BRAFTOVI [Suspect]
     Active Substance: ENCORAFENIB
     Indication: PRODUCT USED FOR UNKNOWN INDICATION
     Route: 048
     Dates: start: 20210423
  10. ELIQUIS [Concomitant]
     Active Substance: APIXABAN
     Dates: start: 20210126
  11. SANCUSO [Concomitant]
     Active Substance: GRANISETRON
     Dates: start: 20210511
  12. OMEPRAZOLE. [Concomitant]
     Active Substance: OMEPRAZOLE
     Dates: start: 20201222
  13. VITAMIN D [Concomitant]
     Active Substance: VITAMIN D NOS
     Dates: start: 20210423

REACTIONS (1)
  - Therapy interrupted [None]
